FAERS Safety Report 12334816 (Version 2)
Quarter: 2016Q4

REPORT INFORMATION
  Report Type: Spontaneous
  Country: JP (occurrence: JP)
  Receive Date: 20160504
  Receipt Date: 20161122
  Transmission Date: 20170207
  Serious: Yes (Other)
  Sender: FDA-Public Use
  Company Number: ALJP2016JP000573

PATIENT
  Sex: Female

DRUGS (4)
  1. SANTESON//DEXAMETHASONE SODIUM METASULFOBENZOATE [Concomitant]
     Indication: POSTOPERATIVE CARE
     Dosage: 1 GTT, TID
     Route: 047
     Dates: start: 20150909, end: 20150915
  2. SANTESON//DEXAMETHASONE SODIUM METASULFOBENZOATE [Concomitant]
     Dosage: 1 GTT, TID
     Route: 047
     Dates: start: 20150930, end: 20151006
  3. NEVANAC [Suspect]
     Active Substance: NEPAFENAC
     Indication: POSTOPERATIVE CARE
     Dosage: 1 GTT, TID
     Route: 047
     Dates: start: 20150909
  4. NEVANAC [Suspect]
     Active Substance: NEPAFENAC
     Dosage: 1 GTT, TID
     Route: 047
     Dates: start: 20150930

REACTIONS (1)
  - Cystoid macular oedema [Recovered/Resolved]

NARRATIVE: CASE EVENT DATE: 20151021
